FAERS Safety Report 5802703-0 (Version None)
Quarter: 2008Q2

REPORT INFORMATION
  Report Type: 
  Country: None (occurrence: None)
  Receive Date: 20080627
  Receipt Date: 20070831
  Transmission Date: 20081010
  Serious: Yes (Other)
  Sender: FDA-Public Use
  Company Number: 2007-04047

PATIENT
  Age: 52 Year
  Sex: Female
  Weight: 45.4 kg

DRUGS (1)
  1. INFED [Suspect]
     Dosage: 100 MG OVER 1/2 HR IN 100CC NS, INTRAVENOUS
     Route: 042
     Dates: start: 20070831, end: 20070831

REACTIONS (8)
  - CHEST DISCOMFORT [None]
  - DYSPHAGIA [None]
  - HYPERSENSITIVITY [None]
  - LACRIMATION INCREASED [None]
  - LIP SWELLING [None]
  - RHINORRHOEA [None]
  - SNEEZING [None]
  - THROAT IRRITATION [None]
